FAERS Safety Report 25399031 (Version 1)
Quarter: 2025Q2

REPORT INFORMATION
  Report Type: Report from Study
  Country: PT (occurrence: PT)
  Receive Date: 20250605
  Receipt Date: 20250605
  Transmission Date: 20250717
  Serious: Yes (Disabling, Other)
  Sender: VIIV
  Company Number: None

PATIENT

DRUGS (5)
  1. CABOTEGRAVIR [Suspect]
     Active Substance: CABOTEGRAVIR
     Indication: HIV infection
     Route: 030
     Dates: start: 20250318, end: 20250318
  2. RILPIVIRINE [Suspect]
     Active Substance: RILPIVIRINE
     Indication: HIV infection
     Route: 030
     Dates: start: 20250318, end: 20250318
  3. CREATINE [Concomitant]
     Active Substance: CREATINE
     Indication: Product used for unknown indication
     Route: 065
  4. WHEY [Concomitant]
     Active Substance: WHEY
     Indication: Product used for unknown indication
     Route: 065
  5. Bcaa [Concomitant]
     Indication: Product used for unknown indication
     Route: 065

REACTIONS (8)
  - Injection site haematoma [Recovered/Resolved]
  - Myalgia [Recovered/Resolved]
  - Injection site discomfort [Recovered/Resolved]
  - Injection site pain [Recovered/Resolved]
  - Fatigue [Recovered/Resolved]
  - Hypotonia [Recovered/Resolved]
  - Loss of personal independence in daily activities [Unknown]
  - Bedridden [Unknown]

NARRATIVE: CASE EVENT DATE: 20250318
